FAERS Safety Report 9127111 (Version 1)
Quarter: 2013Q1

REPORT INFORMATION
  Report Type: Spontaneous
  Country: US (occurrence: US)
  Receive Date: 20130122
  Receipt Date: 20130122
  Transmission Date: 20140127
  Serious: No
  Sender: FDA-Public Use
  Company Number: US-MYLANLABS-2012S1013153

PATIENT
  Age: 58 Year
  Sex: Female
  Weight: 71.22 kg

DRUGS (4)
  1. LETROZOLE [Suspect]
     Indication: BREAST CANCER
     Route: 048
     Dates: start: 201202
  2. VITAMIN [Concomitant]
     Route: 048
  3. MAGNESIUM [Concomitant]
     Route: 048
  4. LEVOTHYROXINE [Concomitant]
     Indication: GOITRE
     Route: 048

REACTIONS (4)
  - Drug hypersensitivity [Not Recovered/Not Resolved]
  - Urticaria [Not Recovered/Not Resolved]
  - Pruritus [Not Recovered/Not Resolved]
  - Reaction to drug excipients [Not Recovered/Not Resolved]
